FAERS Safety Report 8486692-9 (Version None)
Quarter: 2012Q3

REPORT INFORMATION
  Report Type: 
  Country: None (occurrence: None)
  Receive Date: 20120704
  Receipt Date: 20120621
  Transmission Date: 20120928
  Serious: Yes (Other)
  Sender: FDA-Public Use
  Company Number: IT-ACCORD-013960

PATIENT
  Sex: Female

DRUGS (1)
  1. PACLITAXEL [Suspect]
     Dosage: CYCLIC
     Route: 042
     Dates: start: 20120604, end: 20120604

REACTIONS (2)
  - LOSS OF CONSCIOUSNESS [None]
  - CYANOSIS [None]
